FAERS Safety Report 5076561-9 (Version None)
Quarter: 2006Q3

REPORT INFORMATION
  Report Type: 
  Country: None (occurrence: None)
  Receive Date: 20060807
  Receipt Date: 20060727
  Transmission Date: 20061208
  Serious: Yes (Hospitalization, Other)
  Sender: FDA-Public Use
  Company Number: 2006083651

PATIENT
  Age: 34 Year
  Sex: Female

DRUGS (5)
  1. LYRICA [Suspect]
     Indication: EPILEPSY
     Dosage: 100 MG (50 MG, 1 D), ORAL
     Route: 048
  2. NEURONTIN [Suspect]
     Indication: DRUG USE FOR UNKNOWN INDICATION
  3. TOPIRAMATE [Concomitant]
  4. CARBAMAZEPINE [Concomitant]
  5. PHENOBARBITAL TAB [Concomitant]

REACTIONS (7)
  - AMNESIA [None]
  - CONVULSION [None]
  - CROSS SENSITIVITY REACTION [None]
  - LOSS OF CONSCIOUSNESS [None]
  - OEDEMA PERIPHERAL [None]
  - REGRESSIVE BEHAVIOUR [None]
  - TOXIC SKIN ERUPTION [None]
